FAERS Safety Report 15421292 (Version 1)
Quarter: 2018Q3

REPORT INFORMATION
  Report Type: Spontaneous
  Country: US (occurrence: US)
  Receive Date: 20180924
  Receipt Date: 20180924
  Transmission Date: 20181010
  Serious: No
  Sender: FDA-Public Use
  Company Number: US-ALLERGAN-1760759US

PATIENT
  Age: 48 Year
  Sex: Female

DRUGS (3)
  1. LINZESS [Suspect]
     Active Substance: LINACLOTIDE
     Indication: CONSTIPATION
     Dosage: 145 ?G, UNK
     Route: 048
     Dates: start: 20171005
  2. ALLEGRA?D [Concomitant]
     Active Substance: FEXOFENADINE\PSEUDOEPHEDRINE
     Indication: MULTIPLE ALLERGIES
     Route: 065
  3. LINZESS [Suspect]
     Active Substance: LINACLOTIDE
     Dosage: 72 ?G, UNK
     Route: 048
     Dates: start: 20171015

REACTIONS (4)
  - Drug ineffective [Unknown]
  - Gastrointestinal motility disorder [Not Recovered/Not Resolved]
  - Off label use [Unknown]
  - Gastrointestinal disorder [Not Recovered/Not Resolved]

NARRATIVE: CASE EVENT DATE: 201710
